FAERS Safety Report 6510461-X (Version None)
Quarter: 2009Q4

REPORT INFORMATION
  Report Type: 
  Country: None (occurrence: None)
  Receive Date: 20091222
  Receipt Date: 20091215
  Transmission Date: 20100525
  Serious: Yes (Hospitalization, Other)
  Sender: FDA-Public Use
  Company Number: US-ELI_LILLY_AND_COMPANY-US200912004316

PATIENT
  Sex: Female
  Weight: 92.971 kg

DRUGS (19)
  1. BYETTA [Suspect]
     Indication: TYPE 2 DIABETES MELLITUS
     Dosage: 5 UG, 2/D
     Route: 058
  2. BYETTA [Suspect]
     Dosage: 10 UG, 2/D
     Route: 058
  3. ZETIA [Concomitant]
     Indication: TYPE 2 DIABETES MELLITUS
     Dosage: 10 MG, DAILY (1/D)
  4. CLONIDINE [Concomitant]
     Indication: CARDIAC DISORDER
     Dosage: 0.1 MG, EACH EVENING
  5. LOVAZA [Concomitant]
     Indication: BLOOD CHOLESTEROL
     Dosage: 1 G, 4/D
  6. TRICOR [Concomitant]
     Indication: BLOOD CHOLESTEROL
     Dosage: 145 MG, DAILY (1/D)
  7. WELCHOL [Concomitant]
     Indication: BLOOD CHOLESTEROL
     Dosage: 625 MG, OTHER
  8. ACETAMINOPHEN AND HYDROCODONE BITARTRATE [Concomitant]
     Indication: PAIN
     Dosage: UNK, AS NEEDED
  9. SYNTHROID [Concomitant]
     Indication: THYROID DISORDER
     Dosage: 100 UG, DAILY (1/D)
  10. ASPIRIN [Concomitant]
     Indication: CARDIAC DISORDER
     Dosage: 81 MG, UNKNOWN
  11. ENABLEX                            /01760401/ [Concomitant]
     Indication: BLADDER DISORDER
     Dosage: 50 MG, UNKNOWN
  12. FLOMAX [Concomitant]
     Indication: BLADDER DISORDER
     Dosage: 0.4 MG, UNKNOWN
  13. FUROSEMIDE [Concomitant]
     Indication: POLYURIA
     Dosage: 80 MG, DAILY (1/D)
  14. MAGNESIUM CHLORIDE [Concomitant]
     Indication: CARDIAC DISORDER
     Dosage: UNK, DAILY (1/D)
  15. PROTONIX [Concomitant]
     Indication: ABDOMINAL DISCOMFORT
     Dosage: 40 MG, DAILY (1/D)
  16. COLYTE [Concomitant]
     Dosage: UNK, DAILY (1/D)
  17. VERAPAMIL HCL [Concomitant]
     Indication: HYPERTENSION
     Dosage: 240 MG, UNK
  18. VITAMIN B-12 [Concomitant]
     Dosage: UNK, UNKNOWN
  19. CENTRUM SILVER [Concomitant]
     Dosage: UNK, UNKNOWN

REACTIONS (6)
  - CARDIAC FAILURE [None]
  - ELECTROCARDIOGRAM ABNORMAL [None]
  - FATIGUE [None]
  - LUNG DISORDER [None]
  - RENAL DISORDER [None]
  - WEIGHT DECREASED [None]
